FAERS Safety Report 8942085 (Version 3)
Quarter: 2013Q2

REPORT INFORMATION
  Report Type: Spontaneous
  Country: US (occurrence: US)
  Receive Date: 20121130
  Receipt Date: 20130419
  Transmission Date: 20140414
  Serious: Yes (Other)
  Sender: FDA-Public Use
  Company Number: US-GLAXOSMITHKLINE-A1003067A

PATIENT
  Age: 30 Year
  Sex: Male

DRUGS (3)
  1. POTIGA [Suspect]
     Indication: CONVULSION
     Dosage: 50MG THREE TIMES PER DAY
     Route: 048
     Dates: start: 20121112
  2. VIMPAT [Concomitant]
  3. FELBAMATE [Concomitant]

REACTIONS (10)
  - Petit mal epilepsy [Not Recovered/Not Resolved]
  - Convulsion [Unknown]
  - Myoclonus [Unknown]
  - Somnolence [Unknown]
  - Staring [Unknown]
  - Feeling abnormal [Unknown]
  - Asthenia [Unknown]
  - Grand mal convulsion [Unknown]
  - Malaise [Unknown]
  - Injury [Unknown]
